FAERS Safety Report 15877164 (Version 2)
Quarter: 2019Q2

REPORT INFORMATION
  Report Type: Report from Study
  Country: US (occurrence: US)
  Receive Date: 20190128
  Receipt Date: 20190520
  Transmission Date: 20190711
  Serious: Yes (Other)
  Sender: FDA-Public Use
  Company Number: US-SAKK-2019SA017517AA

PATIENT
  Age: 50 Year
  Sex: Female

DRUGS (1)
  1. ALEMTUZUMAB [Suspect]
     Active Substance: ALEMTUZUMAB
     Indication: MULTIPLE SCLEROSIS
     Dosage: 12 MG, QD
     Route: 041
     Dates: start: 20181112, end: 20181116

REACTIONS (9)
  - Laboratory test abnormal [Not Recovered/Not Resolved]
  - White blood cell count decreased [Not Recovered/Not Resolved]
  - Mass [Not Recovered/Not Resolved]
  - Tenderness [Not Recovered/Not Resolved]
  - Aphasia [Unknown]
  - Asthenia [Unknown]
  - CD4 lymphocytes decreased [Not Recovered/Not Resolved]
  - Movement disorder [Unknown]
  - Lymphocyte count decreased [Not Recovered/Not Resolved]

NARRATIVE: CASE EVENT DATE: 2018
